FAERS Safety Report 12479862 (Version 1)
Quarter: 2016Q2

REPORT INFORMATION
  Report Type: Spontaneous
  Country: US (occurrence: US)
  Receive Date: 20160620
  Receipt Date: 20160620
  Transmission Date: 20160815
  Serious: No
  Sender: FDA-Public Use
  Company Number: US-ENDO PHARMACEUTICALS INC.-2016-002484

PATIENT
  Sex: Female
  Weight: 63.56 kg

DRUGS (5)
  1. TRIAMCINOLONE ACETONIDE CREAM 0.1 [Suspect]
     Active Substance: TRIAMCINOLONE ACETONIDE
     Indication: RASH ERYTHEMATOUS
     Route: 065
     Dates: start: 2016
  2. TRIAMCINOLONE ACETONIDE CREAM 0.1 [Suspect]
     Active Substance: TRIAMCINOLONE ACETONIDE
     Indication: RASH
  3. TRIAMCINOLONE ACETONIDE CREAM 0.1 [Suspect]
     Active Substance: TRIAMCINOLONE ACETONIDE
     Indication: RASH PRURITIC
  4. VITAMIN D3 [Concomitant]
     Active Substance: CHOLECALCIFEROL
     Indication: PRODUCT USED FOR UNKNOWN INDICATION
  5. CALCIUM [Concomitant]
     Active Substance: CALCIUM
     Indication: PRODUCT USED FOR UNKNOWN INDICATION

REACTIONS (1)
  - Skin exfoliation [Recovered/Resolved]

NARRATIVE: CASE EVENT DATE: 2016
